FAERS Safety Report 5407851-5 (Version None)
Quarter: 2007Q3

REPORT INFORMATION
  Report Type: 
  Country: None (occurrence: None)
  Receive Date: 20070713
  Receipt Date: 20070501
  Transmission Date: 20080115
  Serious: No
  Sender: FDA-Public Use
  Company Number: 2007SP001604

PATIENT
  Age: 72 Year
  Sex: Female
  Weight: 52.1637 kg

DRUGS (4)
  1. LUNESTA [Suspect]
     Indication: INSOMNIA
     Dosage: 2 MG; PRN; ORAL; 2 MG; HS; ORAL
     Route: 048
     Dates: start: 20060101
  2. LUNESTA [Suspect]
     Indication: INSOMNIA
     Dosage: 2 MG; PRN; ORAL; 2 MG; HS; ORAL
     Route: 048
     Dates: start: 20070101
  3. FOSAMAX [Concomitant]
  4. CALCIUM CHLORIDE [Concomitant]

REACTIONS (1)
  - DRUG EFFECT DECREASED [None]
